FAERS Safety Report 16098413 (Version 2)
Quarter: 2019Q2

REPORT INFORMATION
  Report Type: Spontaneous
  Country: NL (occurrence: NL)
  Receive Date: 20190321
  Receipt Date: 20190524
  Transmission Date: 20190711
  Serious: Yes (Other)
  Sender: FDA-Public Use
  Company Number: NL-TEVA-2019-NL-1026904

PATIENT
  Age: 82 Year
  Sex: Male

DRUGS (14)
  1. BETAHISTINE ACCORD 8MG [Concomitant]
     Dosage: 3DD2
     Dates: start: 20180629
  2. NITROGLYCERINE SANDOZ OROMUCOSAAL [Concomitant]
     Dosage: IF NECESSARY
     Dates: start: 20180107
  3. NIZORAL CREME [Concomitant]
     Dosage: 2DD
     Dates: start: 20180219
  4. FLUCLOXACILLINE MYLAN 500MG [Concomitant]
     Dosage: 4DD1
     Dates: start: 20190128
  5. ENALAPRIL MYLAN 10MG [Concomitant]
     Dosage: 10 MILLIGRAM DAILY; 1DD1
     Dates: start: 20180216
  6. TEMAZEPAM PCH 10MG [Concomitant]
     Dosage: 10 MILLIGRAM DAILY; 1DD1
     Dates: start: 20181015
  7. OMEPRAZOL MAAGSAPRESISTENTE CAPSULE, 20 MG (MILLIGRAM) [Suspect]
     Active Substance: OMEPRAZOLE SODIUM
     Indication: PRODUCT USED FOR UNKNOWN INDICATION
     Dosage: 20 MILLIGRAM DAILY;
     Dates: start: 20190208
  8. FOLIUMZUUR TEVA 0,5MG [Concomitant]
     Dosage: 1DD1
     Dates: start: 20180209
  9. ARTELAC OOGDRUPPELS [Concomitant]
     Dosage: 1-3DD1 DROP
     Dates: start: 20180507
  10. EFUDIX CREME [Concomitant]
     Dosage: 2DD
     Dates: start: 20181015
  11. BETAHISTINE TEVA 16MG [Concomitant]
     Dosage: 3DD1
     Dates: start: 20180824
  12. MIRTAZAPINE SANDOZ 15MG [Concomitant]
     Dosage: 15 MILLIGRAM DAILY; 1DD1
     Dates: start: 20171122
  13. PREDNISOLON SANDOZ 5MG [Concomitant]
     Dosage: 15 MILLIGRAM DAILY; 1DD3
     Dates: start: 20181018
  14. AMOXICILLINE DISPERS SANDOZ 500MG [Concomitant]
     Dosage: 3DD1
     Dates: start: 20190205

REACTIONS (1)
  - Inappropriate antidiuretic hormone secretion [Recovered/Resolved]

NARRATIVE: CASE EVENT DATE: 20190214
